FAERS Safety Report 9118900 (Version 1)
Quarter: 2013Q1

REPORT INFORMATION
  Report Type: Spontaneous
  Country: GB (occurrence: GB)
  Receive Date: 20130226
  Receipt Date: 20130226
  Transmission Date: 20140127
  Serious: Yes (Hospitalization)
  Sender: FDA-Public Use
  Company Number: PHHY2013GB018304

PATIENT
  Age: 80 Year
  Sex: Male

DRUGS (4)
  1. CLOPIDOGREL [Suspect]
     Indication: CARDIAC DISORDER
     Route: 065
  2. GLIVEC [Suspect]
     Dosage: 400 MG, UNK
     Route: 048
  3. WARFARIN [Concomitant]
  4. ASPIRIN [Concomitant]

REACTIONS (3)
  - Dyspnoea [Unknown]
  - Pallor [Unknown]
  - Anaemia [Unknown]
